FAERS Safety Report 9478483 (Version 3)
Quarter: 2013Q3

REPORT INFORMATION
  Report Type: Spontaneous
  Country: US (occurrence: US)
  Receive Date: 20130827
  Receipt Date: 20130905
  Transmission Date: 20140515
  Serious: No
  Sender: FDA-Public Use
  Company Number: US-009507513-1308USA005174

PATIENT
  Age: 74 Year
  Sex: Male
  Weight: 75.74 kg

DRUGS (7)
  1. MIRALAX [Suspect]
     Indication: PRODUCT USED FOR UNKNOWN INDICATION
     Dosage: 17 G, QD
     Route: 048
  2. MIRALAX [Suspect]
     Indication: MEDICAL OBSERVATION
  3. CAPTOPRIL [Concomitant]
     Indication: HYPERTENSION
     Dosage: UNK, UNKNOWN
  4. GLYBURIDE [Concomitant]
     Indication: BLOOD GLUCOSE INCREASED
     Dosage: UNK, UNKNOWN
  5. METOPROLOL [Concomitant]
     Indication: BLOOD GLUCOSE INCREASED
     Dosage: UNK, UNKNOWN
  6. NIASPAN [Concomitant]
     Indication: BLOOD CHOLESTEROL INCREASED
     Dosage: UNK, UNKNOWN
  7. AVODART [Concomitant]
     Indication: PROSTATOMEGALY
     Dosage: UNK, UNKNOWN

REACTIONS (2)
  - Incorrect drug administration duration [Unknown]
  - Expired drug administered [Unknown]
